FAERS Safety Report 9421343 (Version 2)
Quarter: 2013Q3

REPORT INFORMATION
  Report Type: Report from Study
  Country: US (occurrence: US)
  Receive Date: 20130725
  Receipt Date: 20130806
  Transmission Date: 20140515
  Serious: Yes (Hospitalization)
  Sender: FDA-Public Use
  Company Number: US-ALEXION-A201301665

PATIENT
  Age: 25 Year
  Sex: Female
  Weight: 106.5 kg

DRUGS (18)
  1. ECULIZUMAB [Suspect]
     Indication: HAEMOLYTIC URAEMIC SYNDROME
     Dosage: 900 MG, QW
     Route: 042
     Dates: start: 20090807
  2. ECULIZUMAB [Suspect]
     Dosage: 1200 MG, Q2W
     Route: 042
  3. NORVASC [Concomitant]
     Dosage: 10 MG, QD
  4. AZATHIOPRINE [Concomitant]
     Dosage: 50 MG, QD
  5. FIORICET [Concomitant]
     Indication: HEADACHE
     Dosage: UNK, PRN
  6. COREG [Concomitant]
     Dosage: 25 MG, BID
  7. CITALOPRAM [Concomitant]
     Dosage: 20 MG, QD
  8. CLONIDINE [Concomitant]
     Dosage: 0.3 MG, TID
  9. ERGOCALCIFEROL [Concomitant]
     Dosage: 60000 IU, QW
  10. HYDRALAZINE [Concomitant]
     Dosage: 50 MG, QD
  11. LOSARTAN [Concomitant]
     Dosage: 50 MG, BID
  12. REGLAN [Concomitant]
     Dosage: 10 MG, BEFORE MEALS AND AT BEDTIME
  13. NEXIUM [Concomitant]
     Dosage: 40 MG, QD
  14. PREDNISONE [Concomitant]
     Dosage: 10 MG, QD
  15. DILTIAZEM ER [Concomitant]
     Dosage: 360 MG, QD
  16. TACROLIMUS [Concomitant]
     Dosage: 4 MG, BID
  17. VALCYTE [Concomitant]
     Dosage: 450 MG, Q2DQYS
  18. AMBIEN [Concomitant]
     Dosage: UNK, PRN

REACTIONS (1)
  - Pyrexia [Recovered/Resolved]
